FAERS Safety Report 21806568 (Version 1)
Quarter: 2023Q1

REPORT INFORMATION
  Report Type: Report from Study
  Country: US (occurrence: US)
  Receive Date: 20230102
  Receipt Date: 20230102
  Transmission Date: 20230417
  Serious: No
  Sender: FDA-Public Use
  Company Number: US-ABBVIE-4197709

PATIENT
  Sex: Male

DRUGS (1)
  1. HUMIRA [Suspect]
     Active Substance: ADALIMUMAB
     Indication: Rheumatoid arthritis
     Route: 058

REACTIONS (10)
  - Injection site pruritus [Recovered/Resolved]
  - Arthralgia [Not Recovered/Not Resolved]
  - Injection site inflammation [Recovered/Resolved]
  - Joint stiffness [Not Recovered/Not Resolved]
  - Spinal pain [Not Recovered/Not Resolved]
  - Injection site papule [Recovered/Resolved]
  - Injection site warmth [Recovered/Resolved]
  - Injection site induration [Recovered/Resolved]
  - Injection site swelling [Recovered/Resolved]
  - Bone pain [Not Recovered/Not Resolved]
